FAERS Safety Report 8987273 (Version 1)
Quarter: 2012Q4

REPORT INFORMATION
  Report Type: 
  Country: AU (occurrence: AU)
  Receive Date: 20121226
  Receipt Date: 20121226
  Transmission Date: 20130627
  Serious: Yes (Other)
  Sender: FDA-Public Use
  Company Number: AU-ROCHE-1173024

PATIENT
  Sex: Female

DRUGS (6)
  1. HERCEPTIN [Suspect]
     Indication: BREAST CANCER
     Route: 065
  2. XELODA [Suspect]
     Indication: BREAST CANCER
     Route: 065
     Dates: start: 201208
  3. ABRAXANE [Concomitant]
     Route: 065
  4. ABRAXANE [Concomitant]
     Route: 065
     Dates: start: 201104
  5. ZOLADEX [Concomitant]
  6. GEMCITABINE [Concomitant]
     Route: 065
     Dates: start: 201104

REACTIONS (1)
  - Disease progression [Unknown]
